FAERS Safety Report 23977877 (Version 1)
Quarter: 2024Q2

REPORT INFORMATION
  Report Type: Spontaneous
  Country: CN (occurrence: CN)
  Receive Date: 20240614
  Receipt Date: 20240614
  Transmission Date: 20240717
  Serious: Yes (Hospitalization)
  Sender: FDA-Public Use
  Company Number: CN-BEIGENE-BGN-2024-008642

PATIENT

DRUGS (4)
  1. TISLELIZUMAB [Suspect]
     Active Substance: TISLELIZUMAB
     Indication: Cholangiocarcinoma
     Dosage: 200 MILLIGRAM
     Route: 041
     Dates: start: 20240418
  2. GIMERACIL\OTERACIL\TEGAFUR [Suspect]
     Active Substance: GIMERACIL\OTERACIL POTASSIUM\TEGAFUR
     Indication: Cholangiocarcinoma
     Dosage: 60 MILLIGRAM, BID
     Route: 048
     Dates: start: 20240418
  3. PACLITAXEL [Suspect]
     Active Substance: PACLITAXEL
     Indication: Cholangiocarcinoma
     Dosage: 100 MILLIGRAM
     Route: 041
     Dates: start: 20240418
  4. BEVACIZUMAB [Suspect]
     Active Substance: BEVACIZUMAB
     Indication: Cholangiocarcinoma
     Dosage: 400 MILLIGRAM
     Route: 041
     Dates: start: 20240418

REACTIONS (2)
  - Neutrophil count decreased [Unknown]
  - White blood cell count increased [Unknown]

NARRATIVE: CASE EVENT DATE: 20240424
